FAERS Safety Report 13071456 (Version 1)
Quarter: 2016Q4

REPORT INFORMATION
  Report Type: Spontaneous
  Country: US (occurrence: US)
  Receive Date: 20161229
  Receipt Date: 20161229
  Transmission Date: 20170207
  Serious: Yes (Disabling)
  Sender: FDA-Public Use
  Company Number: US-PFIZER INC-2016472869

PATIENT
  Age: 58 Year
  Sex: Female

DRUGS (12)
  1. PROAIR RESPICLICK [Concomitant]
     Active Substance: ALBUTEROL SULFATE
     Indication: DYSPNOEA
     Dosage: 180 UG, AS NEEDED, (90 MCG/ACTUATION), (EVERY 4-6 HOURS)
     Route: 055
  2. QVAR [Concomitant]
     Active Substance: BECLOMETHASONE DIPROPIONATE
     Dosage: 1 DF, 2X/DAY, (80 MCG/ACTUATION AEROSOL)
     Route: 055
  3. SPIRIVA [Concomitant]
     Active Substance: TIOTROPIUM BROMIDE MONOHYDRATE
     Dosage: 2 DF, 1X/DAY, (2.5 MCG/ACTUATION MIST), (BY INHALATION ROUTE AT THE SAME TIME EACH DAY)
     Route: 055
  4. CYCLOBENZAPRINE [Concomitant]
     Active Substance: CYCLOBENZAPRINE
     Indication: MUSCLE SPASMS
     Dosage: 5 MG, AS NEEDED (1 TAB 2 TIMES PER DAY PRN)
     Route: 048
  5. LYRICA [Suspect]
     Active Substance: PREGABALIN
     Dosage: 50 MG, 3X/DAY
     Route: 048
  6. PRAVACHOL [Concomitant]
     Active Substance: PRAVASTATIN SODIUM
     Dosage: 20 MG, 1X/DAY
     Route: 048
  7. OLANZAPINE. [Concomitant]
     Active Substance: OLANZAPINE
     Dosage: 2.5 MG, 1X/DAY
     Route: 048
  8. SERTRALINE [Concomitant]
     Active Substance: SERTRALINE HYDROCHLORIDE
     Dosage: 50 MG, DAILY, (THEN INCREASE TO 2 TABS PER DAY)
     Route: 048
  9. PROVENTIL HFA [Concomitant]
     Active Substance: ALBUTEROL SULFATE
     Dosage: 2 DF, AS NEEDED, (90 MCG/ACTUATION), (4 TIMES PER DAY)
     Route: 055
  10. SERTRALINE [Concomitant]
     Active Substance: SERTRALINE HYDROCHLORIDE
     Dosage: 25 MG, 1X/DAY
     Route: 048
  11. ALBUTEROL SULFATE. [Concomitant]
     Active Substance: ALBUTEROL SULFATE
     Dosage: 3 ML, AS NEEDED, (2.5 MG / 3 ML), (INHALATION ROUTE EVERY 4-6 HOURS PRN)
     Route: 055
  12. NEURONTIN [Concomitant]
     Active Substance: GABAPENTIN
     Dosage: 800 MG, 3X/DAY
     Route: 048

REACTIONS (1)
  - Malaise [Unknown]
